FAERS Safety Report 5144770-6 (Version None)
Quarter: 2006Q4

REPORT INFORMATION
  Report Type: 
  Country: None (occurrence: None)
  Receive Date: 20061103
  Receipt Date: 20061103
  Transmission Date: 20070319
  Serious: Yes (Hospitalization)
  Sender: FDA-Public Use
  Company Number: None

PATIENT
  Sex: Male
  Weight: 86.4 kg

DRUGS (3)
  1. FLUOROURACIL [Suspect]
     Dosage: 5768 MG
     Dates: end: 20061025
  2. LEUCOVORIN CALCIUM [Suspect]
     Dosage: 824 MG
     Dates: end: 20061023
  3. ELOXATIN [Suspect]
     Dosage: 175 MG
     Dates: end: 20061023

REACTIONS (4)
  - ARTHRALGIA [None]
  - CHEST DISCOMFORT [None]
  - CHEST PAIN [None]
  - PULMONARY EMBOLISM [None]
